FAERS Safety Report 15368497 (Version 1)
Quarter: 2018Q3

REPORT INFORMATION
  Report Type: Spontaneous
  Country: GB (occurrence: GB)
  Receive Date: 20180910
  Receipt Date: 20180910
  Transmission Date: 20181010
  Serious: Yes (Death)
  Sender: FDA-Public Use
  Company Number: GB-SAKK-2018SA242279AA

PATIENT
  Age: 57 Year
  Sex: Male
  Weight: 76.5 kg

DRUGS (13)
  1. LANSOPRAZOLE. [Concomitant]
     Active Substance: LANSOPRAZOLE
  2. METOCLOPRAMIDE. [Concomitant]
     Active Substance: METOCLOPRAMIDE
  3. EPLERENONE. [Concomitant]
     Active Substance: EPLERENONE
  4. SIMVASTATIN. [Concomitant]
     Active Substance: SIMVASTATIN
  5. LEVOTHYROXINE. [Concomitant]
     Active Substance: LEVOTHYROXINE
  6. ONDANSETRON [Concomitant]
     Active Substance: ONDANSETRON
  7. PARACETAMOL [Concomitant]
     Active Substance: ACETAMINOPHEN
  8. DOCETAXEL. [Suspect]
     Active Substance: DOCETAXEL
     Indication: NON-SMALL CELL LUNG CANCER STAGE IV
     Dosage: 140 MG
     Route: 042
     Dates: start: 20180710, end: 20180710
  9. ACETYLSALICYLIC ACID [Concomitant]
     Active Substance: ASPIRIN
  10. GLYCERYL TRINITRATE [Concomitant]
     Active Substance: NITROGLYCERIN
  11. DEXAMETHASONE. [Concomitant]
     Active Substance: DEXAMETHASONE
  12. BISOPROLOL [Concomitant]
     Active Substance: BISOPROLOL
  13. GAVISCON FORTE [ALGELDRATE;ALGINIC ACID;CALCIUM CARBONATE;MAGNESIUM TR [Concomitant]

REACTIONS (2)
  - Pneumonitis [Fatal]
  - Dyspnoea [Fatal]

NARRATIVE: CASE EVENT DATE: 20180725
